FAERS Safety Report 4935635-0 (Version None)
Quarter: 2006Q1

REPORT INFORMATION
  Report Type: 
  Country: None (occurrence: None)
  Receive Date: 20060307
  Receipt Date: 20050929
  Transmission Date: 20060701
  Serious: No
  Sender: FDA-Public Use
  Company Number: US-GLAXOSMITHKLINE-A0576409A

PATIENT
  Age: 52 Year
  Sex: Female

DRUGS (8)
  1. REQUIP [Suspect]
     Indication: RESTLESS LEGS SYNDROME
     Dosage: .5MG PER DAY
     Route: 048
     Dates: start: 20050924
  2. PAXIL [Concomitant]
  3. TRAZODONE [Concomitant]
  4. BUSPAR [Concomitant]
  5. LAMICTAL [Concomitant]
  6. KLONOPIN [Concomitant]
  7. ZYPREXA [Concomitant]
  8. CPAP [Concomitant]

REACTIONS (1)
  - DRUG INEFFECTIVE [None]
